FAERS Safety Report 8414662-5 (Version None)
Quarter: 2012Q2

REPORT INFORMATION
  Report Type: 
  Country: None (occurrence: None)
  Receive Date: 20120605
  Receipt Date: 20120521
  Transmission Date: 20120825
  Serious: Yes (Other)
  Sender: FDA-Public Use
  Company Number: AT-WATSON-2012-09458

PATIENT
  Age: 21 Year
  Sex: Male

DRUGS (1)
  1. AMPICILLIN [Suspect]
     Indication: BRAIN ABSCESS
     Dosage: 4 G, TID
     Route: 042

REACTIONS (8)
  - PANCREATIC ENZYMES INCREASED [None]
  - PYREXIA [None]
  - HERPES ZOSTER [None]
  - HEPATIC ENZYME INCREASED [None]
  - THROMBOCYTOPENIA [None]
  - BLOOD LACTATE DEHYDROGENASE INCREASED [None]
  - PANCYTOPENIA [None]
  - CEREBRAL THROMBOSIS [None]
